FAERS Safety Report 6959283-6 (Version None)
Quarter: 2010Q3

REPORT INFORMATION
  Report Type: 
  Country: None (occurrence: None)
  Receive Date: 20100831
  Receipt Date: 20100818
  Transmission Date: 20110219
  Serious: No
  Sender: FDA-Public Use
  Company Number: US-PFIZER INC-2010104529

PATIENT
  Sex: Male
  Weight: 88 kg

DRUGS (1)
  1. CHANTIX [Suspect]
     Indication: SMOKING CESSATION THERAPY
     Dosage: 0.5 MG, DAILY
     Route: 048
     Dates: start: 20070101, end: 20070101

REACTIONS (6)
  - ABNORMAL DREAMS [None]
  - DYSGEUSIA [None]
  - EMOTIONAL DISORDER [None]
  - MALAISE [None]
  - NAUSEA [None]
  - RESTLESSNESS [None]
